FAERS Safety Report 16952140 (Version 1)
Quarter: 2019Q4

REPORT INFORMATION
  Report Type: Spontaneous
  Country: US (occurrence: US)
  Receive Date: 20191022
  Receipt Date: 20191022
  Transmission Date: 20200122
  Serious: No
  Sender: FDA-Public Use
  Company Number: None

PATIENT
  Age: 76 Year
  Sex: Female
  Weight: 50.85 kg

DRUGS (5)
  1. ARMOUR THYROID [Concomitant]
     Active Substance: THYROID, PORCINE
  2. POTASSIUM [Concomitant]
     Active Substance: POTASSIUM
  3. MAGNESIUM [Concomitant]
     Active Substance: MAGNESIUM
  4. PILOCARPINE. [Suspect]
     Active Substance: PILOCARPINE
     Indication: SINUS DISORDER
     Dosage: ?          QUANTITY:1 TABLET(S);?
     Route: 048
  5. MULTIVITAMIN [Concomitant]
     Active Substance: VITAMINS

REACTIONS (7)
  - Fatigue [None]
  - Hyperhidrosis [None]
  - Dehydration [None]
  - Gastrooesophageal reflux disease [None]
  - Malaise [None]
  - Asthenia [None]
  - Dry eye [None]

NARRATIVE: CASE EVENT DATE: 20191014
